FAERS Safety Report 6935230-8 (Version None)
Quarter: 2010Q3

REPORT INFORMATION
  Report Type: 
  Country: None (occurrence: None)
  Receive Date: 20100822
  Receipt Date: 20100510
  Transmission Date: 20110219
  Serious: No
  Sender: FDA-Public Use
  Company Number: US-ALLERGAN-1006151US

PATIENT
  Age: 76 Year
  Sex: Female

DRUGS (1)
  1. COMBIGAN [Suspect]
     Indication: GLAUCOMA
     Dosage: UNK
     Route: 047
     Dates: start: 20100201, end: 20100401

REACTIONS (3)
  - EYE DISCHARGE [None]
  - EYE SWELLING [None]
  - OCULAR HYPERAEMIA [None]
